FAERS Safety Report 4679855-1 (Version None)
Quarter: 2005Q2

REPORT INFORMATION
  Report Type: 
  Country: None (occurrence: None)
  Receive Date: 20050602
  Receipt Date: 20050317
  Transmission Date: 20051028
  Serious: No
  Sender: FDA-Public Use
  Company Number: US-GLAXOSMITHKLINE-A0550274A

PATIENT
  Age: 29 Year
  Sex: Female

DRUGS (2)
  1. AUGMENTIN XR [Suspect]
     Indication: SINUSITIS
     Dosage: 1000MG TWICE PER DAY
     Route: 048
     Dates: start: 20050220, end: 20050302
  2. CONTRACEPTIVE [Concomitant]

REACTIONS (11)
  - DRY MOUTH [None]
  - ERYTHEMA [None]
  - FATIGUE [None]
  - FUNGAL INFECTION [None]
  - GASTROOESOPHAGEAL REFLUX DISEASE [None]
  - GENITAL PRURITUS FEMALE [None]
  - NAUSEA [None]
  - PHARYNGEAL ERYTHEMA [None]
  - PRURITUS ANI [None]
  - STOMATITIS [None]
  - VAGINAL HAEMORRHAGE [None]
